FAERS Safety Report 23428899 (Version 1)
Quarter: 2024Q1

REPORT INFORMATION
  Report Type: Spontaneous
  Country: US (occurrence: US)
  Receive Date: 20240122
  Receipt Date: 20240122
  Transmission Date: 20240410
  Serious: Yes (Hospitalization)
  Sender: FDA-Public Use
  Company Number: US-AMGEN-USASP2024010347

PATIENT
  Age: 80 Year
  Sex: Male

DRUGS (5)
  1. REPATHA [Suspect]
     Active Substance: EVOLOCUMAB
     Indication: Blood cholesterol abnormal
     Dosage: 140 MILLIGRAM, QMO
     Route: 065
  2. ELIQUIS [Concomitant]
     Active Substance: APIXABAN
  3. ZETIA [Concomitant]
     Active Substance: EZETIMIBE
  4. MIRTAZAPINE [Concomitant]
     Active Substance: MIRTAZAPINE
  5. METOPROLOL [Concomitant]
     Active Substance: METOPROLOL

REACTIONS (4)
  - Vertigo [Unknown]
  - Product storage error [Unknown]
  - Intercepted product administration error [Unknown]
  - Off label use [Unknown]

NARRATIVE: CASE EVENT DATE: 20231218
